FAERS Safety Report 11432934 (Version 1)
Quarter: 2015Q3

REPORT INFORMATION
  Report Type: Report from Study
  Country: US (occurrence: US)
  Receive Date: 20150828
  Receipt Date: 20150828
  Transmission Date: 20151125
  Serious: Yes (Hospitalization, Other)
  Sender: FDA-Public Use
  Company Number: US-ABBVIE-15K-163-1451738-00

PATIENT
  Age: 67 Year
  Sex: Female

DRUGS (1)
  1. HUMIRA [Suspect]
     Active Substance: ADALIMUMAB
     Indication: PRODUCT USED FOR UNKNOWN INDICATION
     Route: 065
     Dates: start: 20140820

REACTIONS (6)
  - Dyskinesia [Unknown]
  - Drug dose omission [Unknown]
  - Drug dose omission [Unknown]
  - Unevaluable event [Unknown]
  - Brain neoplasm [Unknown]
  - Seizure [Unknown]

NARRATIVE: CASE EVENT DATE: 2015
